FAERS Safety Report 4895510-7 (Version None)
Quarter: 2006Q1

REPORT INFORMATION
  Report Type: 
  Country: None (occurrence: None)
  Receive Date: 20060125
  Receipt Date: 20060112
  Transmission Date: 20060701
  Serious: Yes (Other)
  Sender: FDA-Public Use
  Company Number: 2005145399

PATIENT
  Age: 45 Year
  Sex: Male
  Weight: 95.2554 kg

DRUGS (8)
  1. LIPITOR [Suspect]
     Indication: BLOOD CHOLESTEROL
     Dosage: 10 MG (10 MG, 1 IN 1 D), UNKNOWN
     Dates: end: 20050101
  2. RELPAX [Suspect]
     Indication: MIGRAINE
     Dosage: 40 MG (40 MG, AS NECESSARY), UNKNOWN
  3. ZITHROMAX [Suspect]
     Indication: LYME DISEASE
     Dosage: INTRAVENOUS
     Route: 042
     Dates: start: 20050301
  4. CLINDAMYCIN PHOSPHATE [Suspect]
     Indication: LYME DISEASE
     Dosage: INTRAVENOUS
     Route: 042
     Dates: start: 20050301
  5. ROCEPHIN [Suspect]
     Indication: LYME DISEASE
     Dosage: INTRAVENOUS
     Route: 042
     Dates: start: 20050301
  6. PRIMAXIN [Suspect]
     Indication: LYME DISEASE
     Dosage: INTRAVENOUS
     Route: 042
     Dates: start: 20050301
  7. LEVAQUIN [Concomitant]
  8. VALSARTAN [Concomitant]

REACTIONS (2)
  - HEPATIC ENZYME INCREASED [None]
  - LYME DISEASE [None]
